FAERS Safety Report 6434830-1 (Version None)
Quarter: 2009Q4

REPORT INFORMATION
  Report Type: 
  Country: None (occurrence: None)
  Receive Date: 20091110
  Receipt Date: 20091029
  Transmission Date: 20100525
  Serious: No
  Sender: FDA-Public Use
  Company Number: GB-JNJFOC-20091003558

PATIENT
  Sex: Male
  Weight: 98 kg

DRUGS (3)
  1. DUROGESIC TRANS [Suspect]
     Dosage: ONE AND A HALF PATCHES OF 12.5 UG/HR
     Route: 062
  2. DUROGESIC TRANS [Suspect]
     Route: 062
  3. DUROGESIC TRANS [Suspect]
     Indication: PAIN
     Route: 062

REACTIONS (3)
  - BODY TEMPERATURE INCREASED [None]
  - DRUG INEFFECTIVE [None]
  - WRONG TECHNIQUE IN DRUG USAGE PROCESS [None]
